FAERS Safety Report 25838514 (Version 3)
Quarter: 2025Q4

REPORT INFORMATION
  Report Type: Report from Study
  Country: US (occurrence: US)
  Receive Date: 20250923
  Receipt Date: 20251123
  Transmission Date: 20260117
  Serious: Yes (Hospitalization, Other)
  Sender: ABBVIE
  Company Number: US-ABBVIE-6471258

PATIENT
  Age: 60 Year
  Sex: Male

DRUGS (1)
  1. SKYRIZI [Suspect]
     Active Substance: RISANKIZUMAB-RZAA
     Indication: Psoriasis
     Route: 058
     Dates: start: 20250601

REACTIONS (4)
  - Neck surgery [Unknown]
  - Surgery [Unknown]
  - Cough [Unknown]
  - Bladder cancer [Unknown]

NARRATIVE: CASE EVENT DATE: 20250101
